FAERS Safety Report 9783247 (Version 1)
Quarter: 2013Q4

REPORT INFORMATION
  Report Type: Spontaneous
  Country: FR (occurrence: FR)
  Receive Date: 20131226
  Receipt Date: 20131226
  Transmission Date: 20140711
  Serious: Yes (Hospitalization)
  Sender: FDA-Public Use
  Company Number: FR-SA-2013SA130985

PATIENT
  Age: 56 Year
  Sex: Male

DRUGS (3)
  1. RIFADINE [Suspect]
     Indication: PRODUCT USED FOR UNKNOWN INDICATION
     Route: 048
     Dates: start: 20120418, end: 20120510
  2. VANCOMYCINE [Suspect]
     Indication: PRODUCT USED FOR UNKNOWN INDICATION
     Route: 042
     Dates: start: 20120330, end: 20120510
  3. LOXEN [Concomitant]
     Dates: start: 20120315

REACTIONS (9)
  - Cheilitis [Recovered/Resolved]
  - Dysphagia [Recovered/Resolved]
  - Toxic skin eruption [Recovered/Resolved]
  - Skin lesion [Recovered/Resolved]
  - Insomnia [Recovered/Resolved]
  - Pruritus [Recovered/Resolved]
  - Cutaneous vasculitis [Recovered/Resolved]
  - Lymphadenopathy [Recovered/Resolved]
  - Lymphadenopathy [Recovered/Resolved]
